FAERS Safety Report 16846827 (Version 1)
Quarter: 2019Q3

REPORT INFORMATION
  Report Type: Report from Study
  Country: US (occurrence: US)
  Receive Date: 20190924
  Receipt Date: 20190924
  Transmission Date: 20191005
  Serious: Yes (Other)
  Sender: FDA-Public Use
  Company Number: US-GILEAD-2019-0428709

PATIENT
  Age: 53 Year
  Sex: Female

DRUGS (2)
  1. METRONIDAZOLE. [Suspect]
     Active Substance: METRONIDAZOLE
     Indication: OOPHORITIS
     Dosage: 500 MG
     Route: 065
  2. SOFOSBUVIR W/VELPATASVIR [Suspect]
     Active Substance: SOFOSBUVIR\VELPATASVIR
     Indication: HEPATITIS C
     Dosage: 1 DOSAGE FORM, QD
     Route: 048
     Dates: start: 201907

REACTIONS (7)
  - Abdominal discomfort [Not Recovered/Not Resolved]
  - Drug hypersensitivity [Not Recovered/Not Resolved]
  - Pruritus [Not Recovered/Not Resolved]
  - Spider vein [Unknown]
  - Parasitic test positive [Not Recovered/Not Resolved]
  - Oophoritis [Not Recovered/Not Resolved]
  - Solar lentigo [Unknown]

NARRATIVE: CASE EVENT DATE: 20190918
